FAERS Safety Report 10402097 (Version 1)
Quarter: 2014Q3

REPORT INFORMATION
  Report Type: Report from Study
  Country: KR (occurrence: KR)
  Receive Date: 20140822
  Receipt Date: 20140822
  Transmission Date: 20150326
  Serious: Yes (Other)
  Sender: FDA-Public Use
  Company Number: KR-OTSUKA-JP-2014-16883

PATIENT

DRUGS (1)
  1. OPC-13013 [Suspect]
     Active Substance: CILOSTAZOL
     Indication: PERIPHERAL ARTERY STENOSIS
     Dosage: UNK
     Route: 065

REACTIONS (1)
  - Peripheral arterial occlusive disease [Unknown]
